FAERS Safety Report 21866195 (Version 1)
Quarter: 2023Q1

REPORT INFORMATION
  Report Type: Spontaneous
  Country: JP (occurrence: JP)
  Receive Date: 20230116
  Receipt Date: 20230116
  Transmission Date: 20230418
  Serious: Yes (Other)
  Sender: FDA-Public Use
  Company Number: JP-002147023-NVSJ2023JP000672

PATIENT
  Age: 84 Year
  Sex: Male

DRUGS (5)
  1. CYCLOSPORINE [Interacting]
     Active Substance: CYCLOSPORINE
     Indication: Aplasia pure red cell
     Dosage: UNK
     Route: 065
  2. CYCLOSPORINE [Interacting]
     Active Substance: CYCLOSPORINE
     Dosage: UNK, DOSE INCREASED
     Route: 065
  3. RIFAMPIN [Interacting]
     Active Substance: RIFAMPIN
     Indication: Pulmonary tuberculosis
     Dosage: UNK
     Route: 065
  4. ISONIAZID [Concomitant]
     Active Substance: ISONIAZID
     Indication: Pulmonary tuberculosis
     Dosage: UNK
     Route: 048
  5. ETHAMBUTOL [Concomitant]
     Active Substance: ETHAMBUTOL HYDROCHLORIDE
     Indication: Pulmonary tuberculosis
     Dosage: UNK
     Route: 048

REACTIONS (6)
  - Aplasia pure red cell [Recovering/Resolving]
  - Condition aggravated [Recovering/Resolving]
  - Drug interaction [Unknown]
  - Renal disorder [Unknown]
  - Blood glucose increased [Unknown]
  - Therapeutic response decreased [Unknown]
